FAERS Safety Report 13287601 (Version 2)
Quarter: 2017Q1

REPORT INFORMATION
  Report Type: Spontaneous
  Country: JP (occurrence: JP)
  Receive Date: 20170302
  Receipt Date: 20170324
  Transmission Date: 20170428
  Serious: Yes (Death)
  Sender: FDA-Public Use
  Company Number: JP-TEVA-742199ISR

PATIENT
  Age: 89 Year
  Sex: Male
  Weight: 55 kg

DRUGS (25)
  1. FENTANYL. [Concomitant]
     Active Substance: FENTANYL
     Dosage: 14.7 MILLIGRAM DAILY;
     Route: 062
     Dates: start: 20150826, end: 20150829
  2. GASTER [Concomitant]
     Active Substance: FAMOTIDINE
     Indication: PROPHYLAXIS AGAINST GASTROINTESTINAL ULCER
     Dosage: 10 MILLIGRAM DAILY;
     Route: 048
     Dates: start: 20150616, end: 20150809
  3. FENTANYL. [Concomitant]
     Active Substance: FENTANYL
     Dosage: 6.3 MILLIGRAM DAILY;
     Route: 062
     Dates: start: 20150626, end: 20150702
  4. FENTANYL. [Concomitant]
     Active Substance: FENTANYL
     Dosage: 10.5 MILLIGRAM DAILY;
     Route: 062
     Dates: start: 20150710, end: 20150716
  5. RINDERON V [Concomitant]
     Active Substance: BETAMETHASONE VALERATE
     Indication: DECREASED APPETITE
     Dosage: .5 MILLIGRAM DAILY;
     Route: 048
     Dates: start: 20150614, end: 20150625
  6. RINDERON V [Concomitant]
     Active Substance: BETAMETHASONE VALERATE
     Dosage: 1.5 MILLIGRAM DAILY;
     Route: 048
     Dates: start: 20150709
  7. AMITIZA [Concomitant]
     Active Substance: LUBIPROSTONE
     Indication: CONSTIPATION
     Dosage: 24 MICROGRAM DAILY;
     Route: 048
     Dates: start: 20150617
  8. FENTANYL. [Concomitant]
     Active Substance: FENTANYL
     Dosage: 8.4 MILLIGRAM DAILY;
     Route: 062
     Dates: start: 20150703, end: 20150709
  9. RINDERON V [Concomitant]
     Active Substance: BETAMETHASONE VALERATE
     Dosage: 4 MILLIGRAM DAILY;
     Route: 048
     Dates: start: 20150810
  10. FENTANYL. [Concomitant]
     Active Substance: FENTANYL
     Dosage: 4.2 MILLIGRAM DAILY;
     Route: 062
     Dates: start: 20150622, end: 20150625
  11. RINDERON V [Concomitant]
     Active Substance: BETAMETHASONE VALERATE
     Dosage: 1 MILLIGRAM DAILY;
     Route: 048
     Dates: start: 20150626
  12. FENTANYL. [Concomitant]
     Active Substance: FENTANYL
     Indication: CANCER PAIN
     Dosage: 2.1 MILLIGRAM DAILY;
     Route: 062
     Dates: start: 20150613, end: 20150621
  13. FENTANYL. [Concomitant]
     Active Substance: FENTANYL
     Dosage: 12.6 MILLIGRAM DAILY;
     Route: 062
     Dates: start: 20150717, end: 20150825
  14. LYRICA [Concomitant]
     Active Substance: PREGABALIN
     Indication: CANCER PAIN
     Route: 048
     Dates: start: 20150622
  15. LYRICA [Concomitant]
     Active Substance: PREGABALIN
     Route: 048
     Dates: start: 20150717
  16. E-FEN BUCCAL [Suspect]
     Active Substance: FENTANYL CITRATE
     Dosage: DAILY DOSE: 0 MICROGRAM - 100 MICROGRAM
     Route: 002
     Dates: start: 20150621, end: 20150703
  17. CALONAL [Concomitant]
     Active Substance: ACETAMINOPHEN
     Indication: CANCER PAIN
     Route: 048
     Dates: end: 20150721
  18. RINDERON V [Concomitant]
     Active Substance: BETAMETHASONE VALERATE
     Dosage: 2 MILLIGRAM DAILY;
     Route: 048
     Dates: start: 20150715
  19. MAGMITT [Concomitant]
     Active Substance: MAGNESIUM OXIDE
     Dosage: 990 MILLIGRAM DAILY;
     Route: 048
     Dates: start: 20150810
  20. AMITIZA [Concomitant]
     Active Substance: LUBIPROSTONE
     Dosage: 48 MICROGRAM DAILY;
     Route: 048
     Dates: start: 20150810
  21. E-FEN BUCCAL [Suspect]
     Active Substance: FENTANYL CITRATE
     Indication: BREAKTHROUGH PAIN
     Dosage: DAILY DOSE: 50 MICROGRAM - 100 MICROGRAM
     Route: 002
     Dates: start: 20150617, end: 20150619
  22. MAGMITT [Concomitant]
     Active Substance: MAGNESIUM OXIDE
     Indication: CONSTIPATION
     Dosage: 660 MILLIGRAM DAILY;
     Route: 048
     Dates: start: 20150616
  23. E-FEN BUCCAL [Suspect]
     Active Substance: FENTANYL CITRATE
     Dosage: 100 MICROGRAM DAILY;
     Route: 002
     Dates: start: 20150707, end: 20150826
  24. LYRICA [Concomitant]
     Active Substance: PREGABALIN
     Route: 048
     Dates: start: 20150703
  25. TAKEPRON [Concomitant]
     Active Substance: LANSOPRAZOLE
     Indication: PROPHYLAXIS AGAINST GASTROINTESTINAL ULCER
     Dosage: 15 MILLIGRAM DAILY;
     Route: 048
     Dates: start: 20150810

REACTIONS (1)
  - Pancreatic carcinoma [Fatal]

NARRATIVE: CASE EVENT DATE: 20150829
